FAERS Safety Report 24239420 (Version 1)
Quarter: 2024Q3

REPORT INFORMATION
  Report Type: Spontaneous
  Country: US (occurrence: US)
  Receive Date: 20240822
  Receipt Date: 20240822
  Transmission Date: 20241017
  Serious: No
  Sender: AVADEL CNS PHARMA
  Company Number: US-AVADEL CNS PHARMACEUTICALS, LLC-2024AVA01192

PATIENT
  Age: 42 Year
  Sex: Female
  Weight: 175.06 kg

DRUGS (6)
  1. LUMRYZ [Suspect]
     Active Substance: SODIUM OXYBATE
     Indication: Narcolepsy
     Dosage: 6 G, ONCE NIGHTLY
     Route: 048
     Dates: start: 20240703
  2. LUMRYZ [Suspect]
     Active Substance: SODIUM OXYBATE
     Indication: Cataplexy
  3. WAKIX [Concomitant]
     Active Substance: PITOLISANT HYDROCHLORIDE
     Dosage: TWO CAPSULES (35.6 MG), 1X/DAY IN THE MORNING
  4. DEXTROAMPHETAMINE [Concomitant]
     Active Substance: DEXTROAMPHETAMINE
     Dosage: ANYWHERE FROM 3-4 CAPSULES, 1X/DAY
  5. VITAMINS NOS [Concomitant]
     Active Substance: VITAMINS
     Dosage: UNK, ONCE DAILY
  6. FLONASE [Concomitant]
     Active Substance: FLUTICASONE PROPIONATE
     Dosage: UNK, 1X/DAY

REACTIONS (14)
  - Gait disturbance [Recovering/Resolving]
  - Feeling abnormal [Recovering/Resolving]
  - Middle insomnia [Recovering/Resolving]
  - Fear [Recovering/Resolving]
  - Poor quality sleep [Recovering/Resolving]
  - Balance disorder [Not Recovered/Not Resolved]
  - Dehydration [Recovering/Resolving]
  - Brain fog [Not Recovered/Not Resolved]
  - Performance status decreased [Not Recovered/Not Resolved]
  - Heat exhaustion [Recovering/Resolving]
  - Therapeutic product effect prolonged [Recovering/Resolving]
  - Nocturia [Recovering/Resolving]
  - Dizziness [Recovering/Resolving]
  - Somnolence [Recovering/Resolving]

NARRATIVE: CASE EVENT DATE: 20240701
